FAERS Safety Report 12998995 (Version 1)
Quarter: 2016Q4

REPORT INFORMATION
  Report Type: Spontaneous
  Country: CA (occurrence: CA)
  Receive Date: 20161205
  Receipt Date: 20161205
  Transmission Date: 20170207
  Serious: Yes (Disabling)
  Sender: FDA-Public Use
  Company Number: CA-GLAXOSMITHKLINE-CA2016GSK177656

PATIENT
  Age: 67 Year
  Sex: Female
  Weight: 100 kg

DRUGS (13)
  1. CENTRUM FORTE [Concomitant]
  2. METOPROLOL. [Concomitant]
     Active Substance: METOPROLOL
  3. COLACE [Concomitant]
     Active Substance: DOCUSATE SODIUM
  4. BUPROPION. [Concomitant]
     Active Substance: BUPROPION
  5. COUMADIN [Concomitant]
     Active Substance: WARFARIN SODIUM
  6. PANTOPRAZOLE [Concomitant]
     Active Substance: PANTOPRAZOLE SODIUM
  7. LAMICTAL [Suspect]
     Active Substance: LAMOTRIGINE
     Indication: DEPRESSION
     Dosage: 100 MG, QD
     Route: 048
  8. TRAZODONE [Concomitant]
     Active Substance: TRAZODONE HYDROCHLORIDE
  9. CALCIUM [Concomitant]
     Active Substance: CALCIUM
  10. LITHIUM. [Concomitant]
     Active Substance: LITHIUM
  11. SYNTHROID [Concomitant]
     Active Substance: LEVOTHYROXINE SODIUM
  12. LACTULOSE SYRUP [Concomitant]
  13. VITAMIN D [Concomitant]
     Active Substance: CHOLECALCIFEROL

REACTIONS (2)
  - Amnesia [Recovered/Resolved]
  - Cognitive disorder [Recovered/Resolved]
